FAERS Safety Report 10993362 (Version 1)
Quarter: 2015Q2

REPORT INFORMATION
  Report Type: Spontaneous
  Country: US (occurrence: US)
  Receive Date: 20150407
  Receipt Date: 20150407
  Transmission Date: 20150821
  Serious: No
  Sender: FDA-Public Use
  Company Number: US-ASTRAZENECA-2015SE30313

PATIENT
  Age: 51 Year
  Sex: Male
  Weight: 88.5 kg

DRUGS (9)
  1. SEROQUEL [Suspect]
     Active Substance: QUETIAPINE FUMARATE
     Indication: INSOMNIA
     Dosage: QUETIAPINE FUMARATE GENERIC
     Route: 048
     Dates: start: 201503
  2. SEROQUEL [Suspect]
     Active Substance: QUETIAPINE FUMARATE
     Indication: SLEEP DISORDER
     Route: 048
     Dates: start: 2005, end: 2012
  3. SEROQUEL [Suspect]
     Active Substance: QUETIAPINE FUMARATE
     Indication: MENTAL DISORDER
     Dosage: QUETIAPINE FUMARATE GENERIC
     Route: 048
     Dates: start: 2012, end: 201503
  4. SEROQUEL [Suspect]
     Active Substance: QUETIAPINE FUMARATE
     Indication: MENTAL DISORDER
     Route: 048
     Dates: start: 2005, end: 2012
  5. SEROQUEL [Suspect]
     Active Substance: QUETIAPINE FUMARATE
     Indication: INSOMNIA
     Dosage: QUETIAPINE FUMARATE GENERIC
     Route: 048
     Dates: start: 2012, end: 201503
  6. SEROQUEL [Suspect]
     Active Substance: QUETIAPINE FUMARATE
     Indication: SLEEP DISORDER
     Dosage: QUETIAPINE FUMARATE GENERIC
     Route: 048
     Dates: start: 2012, end: 201503
  7. SEROQUEL [Suspect]
     Active Substance: QUETIAPINE FUMARATE
     Indication: MENTAL DISORDER
     Dosage: QUETIAPINE FUMARATE GENERIC
     Route: 048
     Dates: start: 201503
  8. SEROQUEL [Suspect]
     Active Substance: QUETIAPINE FUMARATE
     Indication: INSOMNIA
     Route: 048
     Dates: start: 2005, end: 2012
  9. SEROQUEL [Suspect]
     Active Substance: QUETIAPINE FUMARATE
     Indication: SLEEP DISORDER
     Dosage: QUETIAPINE FUMARATE GENERIC
     Route: 048
     Dates: start: 201503

REACTIONS (5)
  - Drug ineffective [Unknown]
  - Drug dose omission [Unknown]
  - Insomnia [Unknown]
  - Product use issue [Unknown]
  - Fatigue [Unknown]

NARRATIVE: CASE EVENT DATE: 2010
